FAERS Safety Report 20574618 (Version 1)
Quarter: 2022Q1

REPORT INFORMATION
  Report Type: Spontaneous
  Country: US (occurrence: US)
  Receive Date: 20220309
  Receipt Date: 20220309
  Transmission Date: 20220423
  Serious: No
  Sender: FDA-Public Use
  Company Number: US-AMGEN-USASP2022036990

PATIENT
  Age: 63 Year
  Sex: Male

DRUGS (5)
  1. MVASI [Suspect]
     Active Substance: BEVACIZUMAB-AWWB
     Indication: Colorectal cancer
     Dosage: 360 MILLIGRAM
     Route: 065
     Dates: start: 20210119
  2. AVASTIN [Concomitant]
     Active Substance: BEVACIZUMAB
     Dosage: UNK UNK, UNK
     Route: 065
  3. FLUOROURACIL\IRINOTECAN\LEUCOVORIN [Concomitant]
     Active Substance: FLUOROURACIL\IRINOTECAN\LEUCOVORIN
     Dosage: UNK
     Route: 065
  4. FLUOROURACIL\LEUCOVORIN CALCIUM\OXALIPLATIN [Concomitant]
     Active Substance: FLUOROURACIL\LEUCOVORIN CALCIUM\OXALIPLATIN
     Dosage: UNK
     Route: 065
  5. ZALTRAP [Concomitant]
     Active Substance: ZIV-AFLIBERCEPT
     Indication: Product used for unknown indication
     Dosage: UNK
     Route: 065

REACTIONS (1)
  - Product dispensing error [Unknown]

NARRATIVE: CASE EVENT DATE: 20220215
